FAERS Safety Report 17468495 (Version 1)
Quarter: 2020Q1

REPORT INFORMATION
  Report Type: Spontaneous
  Country: US (occurrence: US)
  Receive Date: 20200227
  Receipt Date: 20200227
  Transmission Date: 20200409
  Serious: No
  Sender: FDA-Public Use
  Company Number: US-009507513-2002USA005186

PATIENT
  Sex: Female

DRUGS (3)
  1. KEYTRUDA [Suspect]
     Active Substance: PEMBROLIZUMAB
     Dosage: ROUTE OF ADMINISTRATION : INFUSION
  2. LENVIMA [Suspect]
     Active Substance: LENVATINIB
     Dosage: 20 MILLIGRAM, QD
     Route: 048
     Dates: start: 20191123, end: 20191222
  3. LENVIMA [Suspect]
     Active Substance: LENVATINIB
     Indication: ENDOMETRIAL CANCER
     Dosage: 14 MILLIGRAM, QD
     Route: 048
     Dates: start: 20191223

REACTIONS (1)
  - Abdominal pain [Unknown]

NARRATIVE: CASE EVENT DATE: 20200113
